FAERS Safety Report 18908202 (Version 2)
Quarter: 2021Q1

REPORT INFORMATION
  Report Type: Spontaneous
  Country: US (occurrence: US)
  Receive Date: 20210218
  Receipt Date: 20210225
  Transmission Date: 20210420
  Serious: No
  Sender: FDA-Public Use
  Company Number: US-AMGEN INC.-USASP2021024933

PATIENT
  Age: 49 Year
  Sex: Female

DRUGS (2)
  1. MODERNA COVID?19 VACCINE [Concomitant]
     Active Substance: CX-024414
     Indication: COVID-19
     Dosage: UNK
     Dates: start: 20210112
  2. AIMOVIG [Suspect]
     Active Substance: ERENUMAB-AOOE
     Indication: MIGRAINE PROPHYLAXIS
     Dosage: UNK UNK, QMO
     Route: 065
     Dates: start: 20201221

REACTIONS (2)
  - Therapeutic product effect decreased [Unknown]
  - Migraine [Unknown]

NARRATIVE: CASE EVENT DATE: 202101
